FAERS Safety Report 20985957 (Version 4)
Quarter: 2025Q1

REPORT INFORMATION
  Report Type: Spontaneous
  Country: US (occurrence: US)
  Receive Date: 20220621
  Receipt Date: 20250106
  Transmission Date: 20250408
  Serious: Yes (Other)
  Sender: CSL BEHRING
  Company Number: US-BEH-2022144902

PATIENT
  Age: 21 Year
  Sex: Female
  Weight: 49.887 kg

DRUGS (6)
  1. BERINERT [Suspect]
     Active Substance: HUMAN C1-ESTERASE INHIBITOR
     Indication: Hereditary angioedema
     Dosage: 1000 INTERNATIONAL UNIT/KILOGRAM, BIW
     Route: 042
     Dates: start: 20220321
  2. BERINERT [Suspect]
     Active Substance: HUMAN C1-ESTERASE INHIBITOR
     Indication: Hereditary angioedema
     Dosage: 1000 INTERNATIONAL UNIT/KILOGRAM, BIW
     Route: 042
     Dates: start: 20220321
  3. BERINERT [Suspect]
     Active Substance: HUMAN C1-ESTERASE INHIBITOR
     Indication: Prophylaxis
     Route: 042
     Dates: start: 20220321
  4. BERINERT [Suspect]
     Active Substance: HUMAN C1-ESTERASE INHIBITOR
     Indication: Prophylaxis
     Route: 042
     Dates: start: 20220321
  5. HAEGARDA [Suspect]
     Active Substance: HUMAN C1-ESTERASE INHIBITOR
     Indication: Hereditary angioedema
     Dosage: 3000 IU/KG, TIW
     Route: 058
  6. HAEGARDA [Suspect]
     Active Substance: HUMAN C1-ESTERASE INHIBITOR
     Indication: Prophylaxis

REACTIONS (8)
  - Hereditary angioedema [Recovered/Resolved]
  - Device issue [Unknown]
  - Product preparation issue [Unknown]
  - Off label use [Unknown]
  - Poor venous access [Unknown]
  - Device issue [Unknown]
  - Product preparation issue [Unknown]
  - Product use issue [Unknown]

NARRATIVE: CASE EVENT DATE: 20220409
